FAERS Safety Report 6069054-3 (Version None)
Quarter: 2009Q1

REPORT INFORMATION
  Report Type: 
  Country: None (occurrence: None)
  Receive Date: 20090206
  Receipt Date: 20090126
  Transmission Date: 20090719
  Serious: Yes (Death, Other)
  Sender: FDA-Public Use
  Company Number: TR-ROCHE-560965

PATIENT
  Age: 14 Year
  Sex: Female

DRUGS (14)
  1. ALL-TRANS-RETINOIC ACID [Suspect]
     Route: 048
  2. ALL-TRANS-RETINOIC ACID [Interacting]
     Route: 048
  3. FLUCONAZOLE [Interacting]
     Indication: PNEUMONIA
     Route: 065
  4. FLUCONAZOLE [Interacting]
     Dosage: DOSE REDUCED
     Route: 065
  5. MEROPENEM [Concomitant]
     Indication: PNEUMONIA
     Route: 065
  6. MEROPENEM [Concomitant]
     Dosage: DOSE REDUCED
     Route: 065
  7. CEFEPIME [Concomitant]
     Indication: PNEUMONIA
  8. AMIKACIN [Concomitant]
     Indication: PNEUMONIA
  9. IDARUBICIN HCL [Concomitant]
     Dosage: INDUCTION PROTOCOL - 4 INFUSIONS
     Route: 041
  10. IDARUBICIN HCL [Concomitant]
     Dosage: 3 CONSOLIDATION COURSES
     Route: 041
  11. CYTARABINE [Concomitant]
     Dosage: 3 COURSES
  12. MITOXANTRONE [Concomitant]
     Dosage: 3 COURSES
  13. ETOPOSIDE [Concomitant]
  14. THIOGUANINE [Concomitant]

REACTIONS (6)
  - CONJUNCTIVITIS [None]
  - DRUG INTERACTION [None]
  - FEBRILE NEUTROPENIA [None]
  - RASH MACULO-PAPULAR [None]
  - RENAL FAILURE ACUTE [None]
  - SEPSIS [None]
